FAERS Safety Report 20890419 (Version 2)
Quarter: 2022Q3

REPORT INFORMATION
  Report Type: Spontaneous
  Country: US (occurrence: US)
  Receive Date: 20220530
  Receipt Date: 20220801
  Transmission Date: 20221027
  Serious: No
  Sender: FDA-Public Use
  Company Number: US-BRISTOL-MYERS SQUIBB COMPANY-2022-034127

PATIENT
  Age: 72 Year
  Sex: Female

DRUGS (2)
  1. REVLIMID [Suspect]
     Active Substance: LENALIDOMIDE
     Indication: B-cell lymphoma
     Route: 048
     Dates: start: 20220114
  2. REVLIMID [Suspect]
     Active Substance: LENALIDOMIDE
     Indication: Waldenstrom^s macroglobulinaemia
     Dosage: DAILY
     Route: 048
     Dates: start: 20220208

REACTIONS (3)
  - Intentional product use issue [Unknown]
  - White blood cell count decreased [Recovered/Resolved]
  - Neutrophil count decreased [Unknown]

NARRATIVE: CASE EVENT DATE: 20220208
